FAERS Safety Report 8941803 (Version 1)
Quarter: 2012Q4

REPORT INFORMATION
  Report Type: 
  Country: US (occurrence: US)
  Receive Date: 20121203
  Receipt Date: 20121203
  Transmission Date: 20130627
  Serious: No
  Sender: FDA-Public Use
  Company Number: US-TEVA-373577USA

PATIENT
  Age: 16 Year
  Sex: Female
  Weight: 57.2 kg

DRUGS (1)
  1. PLAN B ONE-STEP [Suspect]
     Indication: ABORTION INDUCED
     Dosage: 1.5 Milligram Daily;
     Route: 048
     Dates: start: 20121128, end: 20121128

REACTIONS (4)
  - Exposure during pregnancy [Unknown]
  - Pregnancy [Unknown]
  - Wrong drug administered [Unknown]
  - Off label use [Unknown]
